FAERS Safety Report 24436596 (Version 1)
Quarter: 2024Q4

REPORT INFORMATION
  Report Type: Spontaneous
  Country: US (occurrence: US)
  Receive Date: 20241015
  Receipt Date: 20241015
  Transmission Date: 20250115
  Serious: Yes (Other)
  Sender: RANBAXY
  Company Number: US-SUN PHARMACEUTICAL INDUSTRIES LTD-2024R1-473195

PATIENT
  Age: 61 Year
  Sex: Male

DRUGS (4)
  1. COTRIMOXAZOLE [Suspect]
     Active Substance: SULFAMETHOXAZOLE\TRIMETHOPRIM
     Indication: Renal transplant
     Dosage: UNK
     Route: 065
  2. MYCOPHENOLATE MOFETIL [Suspect]
     Active Substance: MYCOPHENOLATE MOFETIL
     Indication: Renal transplant
     Dosage: 1000 MILLIGRAM, DAILY
     Route: 065
  3. PREDNISOLONE [Suspect]
     Active Substance: PREDNISOLONE
     Indication: Renal transplant
     Dosage: 5 MILLIGRAM, DAILY
     Route: 065
  4. TACROLIMUS [Suspect]
     Active Substance: TACROLIMUS
     Indication: Renal transplant
     Dosage: 5 MILLIGRAM, DAILY
     Route: 065

REACTIONS (12)
  - Hypertension [Unknown]
  - Diabetes mellitus [Unknown]
  - Mucormycosis [Unknown]
  - Aspergillus infection [Unknown]
  - Cryptococcosis [Unknown]
  - Histoplasmosis [Unknown]
  - Coccidioidomycosis [Unknown]
  - Tuberculosis [Unknown]
  - Nocardiosis [Unknown]
  - Burkholderia pseudomallei infection [Not Recovered/Not Resolved]
  - Septic embolus [Unknown]
  - Lung abscess [Not Recovered/Not Resolved]
